FAERS Safety Report 6804951-X (Version None)
Quarter: 2010Q2

REPORT INFORMATION
  Report Type: 
  Country: None (occurrence: None)
  Receive Date: 20100628
  Receipt Date: 20070802
  Transmission Date: 20101027
  Serious: No
  Sender: FDA-Public Use
  Company Number: US-PFIZER INC-2007036215

PATIENT
  Sex: Female
  Weight: 47.63 kg

DRUGS (4)
  1. XALATAN [Suspect]
     Indication: GLAUCOMA
     Route: 047
     Dates: start: 20051003
  2. XALATAN [Suspect]
     Indication: OCULAR HYPERTENSION
  3. SYNTHROID [Concomitant]
     Indication: THYROID DISORDER
  4. VITAMINS [Concomitant]

REACTIONS (4)
  - DRY EYE [None]
  - EYE COMPLICATION ASSOCIATED WITH DEVICE [None]
  - EYE IRRITATION [None]
  - EYE PAIN [None]
